FAERS Safety Report 21716637 (Version 1)
Quarter: 2022Q4

REPORT INFORMATION
  Report Type: Spontaneous
  Country: None (occurrence: CA)
  Receive Date: 20221212
  Receipt Date: 20221212
  Transmission Date: 20230113
  Serious: Yes (Death, Other)
  Sender: FDA-Public Use
  Company Number: CA-B.Braun Medical Inc.-2135784

PATIENT

DRUGS (7)
  1. DEXTROSE [Suspect]
     Active Substance: DEXTROSE
  2. AMPICILLIN SODIUM [Suspect]
     Active Substance: AMPICILLIN SODIUM
  3. ATOSIBAN [Suspect]
     Active Substance: ATOSIBAN
  4. AZITHROMYCIN [Suspect]
     Active Substance: AZITHROMYCIN
  5. BETAMETHASONE [Suspect]
     Active Substance: BETAMETHASONE
  6. GENTAMICIN [Suspect]
     Active Substance: GENTAMICIN
  7. MAGNESIUM SULFATE [Suspect]
     Active Substance: MAGNESIUM SULFATE

REACTIONS (3)
  - Death neonatal [Fatal]
  - Premature baby [Fatal]
  - Foetal exposure during pregnancy [Fatal]
